FAERS Safety Report 20449329 (Version 1)
Quarter: 2022Q1

REPORT INFORMATION
  Report Type: Spontaneous
  Country: US (occurrence: US)
  Receive Date: 20220209
  Receipt Date: 20220209
  Transmission Date: 20220424
  Serious: No
  Sender: FDA-Public Use
  Company Number: US-BEH-2022141520

PATIENT
  Age: 9 Year
  Sex: Male

DRUGS (8)
  1. IDELVION [Suspect]
     Active Substance: COAGULATION FACTOR IX RECOMBINANT HUMAN
     Indication: Factor IX deficiency
     Dosage: 1579 INTERNATIONAL UNIT, BIW
     Route: 042
     Dates: start: 202109
  2. IDELVION [Suspect]
     Active Substance: COAGULATION FACTOR IX RECOMBINANT HUMAN
     Indication: Factor IX deficiency
     Dosage: 1579 INTERNATIONAL UNIT, BIW
     Route: 042
     Dates: start: 202109
  3. IDELVION [Suspect]
     Active Substance: COAGULATION FACTOR IX RECOMBINANT HUMAN
     Indication: Factor IX deficiency
     Dosage: 1579 INTERNATIONAL UNIT
     Route: 042
     Dates: start: 202109
  4. IDELVION [Suspect]
     Active Substance: COAGULATION FACTOR IX RECOMBINANT HUMAN
     Indication: Factor IX deficiency
     Dosage: 1579 INTERNATIONAL UNIT
     Route: 042
     Dates: start: 202109
  5. IDELVION [Suspect]
     Active Substance: COAGULATION FACTOR IX RECOMBINANT HUMAN
     Indication: Factor VIII deficiency
     Dosage: 1639 INTERNATIONAL UNIT, BIW
     Route: 042
     Dates: start: 202109
  6. IDELVION [Suspect]
     Active Substance: COAGULATION FACTOR IX RECOMBINANT HUMAN
     Indication: Factor VIII deficiency
     Dosage: 1639 INTERNATIONAL UNIT, BIW
     Route: 042
     Dates: start: 202109
  7. IDELVION [Suspect]
     Active Substance: COAGULATION FACTOR IX RECOMBINANT HUMAN
     Dosage: 1639 INTERNATIONAL UNIT, BIW
     Route: 042
     Dates: start: 202109
  8. IDELVION [Suspect]
     Active Substance: COAGULATION FACTOR IX RECOMBINANT HUMAN
     Dosage: 1639 INTERNATIONAL UNIT, BIW
     Route: 042
     Dates: start: 202109

REACTIONS (3)
  - Weight decreased [Unknown]
  - No adverse event [Unknown]
  - Off label use [Unknown]

NARRATIVE: CASE EVENT DATE: 20211201
